FAERS Safety Report 25755267 (Version 1)
Quarter: 2025Q3

REPORT INFORMATION
  Report Type: Spontaneous
  Country: CA (occurrence: None)
  Receive Date: 20250903
  Receipt Date: 20250903
  Transmission Date: 20251020
  Serious: Yes (Other)
  Sender: ORION
  Company Number: CA-PFIZER INC-202500172080

PATIENT
  Age: 69 Year
  Sex: Male
  Weight: 106.5 kg

DRUGS (8)
  1. METHOTREXATE [Suspect]
     Active Substance: METHOTREXATE
     Indication: Dermatitis atopic
  2. ACETAMINOPHEN [Concomitant]
     Active Substance: ACETAMINOPHEN
     Indication: Nephrolithiasis
  3. CETIRIZINE [Concomitant]
     Active Substance: CETIRIZINE HYDROCHLORIDE
     Indication: Nephrolithiasis
  4. MORPHINE [Concomitant]
     Active Substance: MORPHINE
     Indication: Nephrolithiasis
  5. NAPROXEN [Concomitant]
     Active Substance: NAPROXEN
     Indication: Nephrolithiasis
  6. OZEMPIC [Concomitant]
     Active Substance: SEMAGLUTIDE
     Indication: Nephrolithiasis
  7. PERINDOPRIL [Concomitant]
     Active Substance: PERINDOPRIL
     Indication: Nephrolithiasis
  8. TAMSULOSIN [Concomitant]
     Active Substance: TAMSULOSIN
     Indication: Nephrolithiasis

REACTIONS (4)
  - Nephrolithiasis [Unknown]
  - Drug ineffective for unapproved indication [Unknown]
  - Product use in unapproved indication [Unknown]
  - Blood triglycerides increased [Unknown]

NARRATIVE: CASE EVENT DATE: 20250101
